FAERS Safety Report 4520512-X (Version None)
Quarter: 2004Q4

REPORT INFORMATION
  Report Type: 
  Country: None (occurrence: None)
  Receive Date: 20041203
  Receipt Date: 20041123
  Transmission Date: 20050328
  Serious: Yes (Other)
  Sender: FDA-Public Use
  Company Number: 2004098386

PATIENT
  Age: 70 Year
  Sex: Male
  Weight: 79.3795 kg

DRUGS (5)
  1. LIPITOR [Suspect]
     Indication: BLOOD CHOLESTEROL
     Dosage: 20 MG (1 IN 1 D), ORAL
     Route: 048
  2. LISINOPRIL [Concomitant]
  3. ERGOCALCIFEROL (ERGOCALCIFEROL) [Concomitant]
  4. SERENOA REPENS (SERENOA REPENS) [Concomitant]
  5. MULTIVITAMINS (ASCORBIC ACID, ERGOCALCIFEROL FOLIC ACID, NICOTINAMIDE, [Concomitant]

REACTIONS (3)
  - BLADDER CANCER [None]
  - CEREBROVASCULAR ACCIDENT [None]
  - COGNITIVE DISORDER [None]
